FAERS Safety Report 7397180-5 (Version None)
Quarter: 2011Q2

REPORT INFORMATION
  Report Type: 
  Country: None (occurrence: None)
  Receive Date: 20110401
  Receipt Date: 20110401
  Transmission Date: 20111010
  Serious: No
  Sender: FDA-Public Use
  Company Number: None

PATIENT
  Age: 36 Year
  Sex: Female
  Weight: 58.9676 kg

DRUGS (1)
  1. HUMULIN R [Suspect]
     Indication: DIABETES MELLITUS
     Dosage: 28 UNITS EVERY MORNING SQ
     Route: 058

REACTIONS (3)
  - MEDICATION ERROR [None]
  - HYPERGLYCAEMIA [None]
  - UNDERDOSE [None]
